FAERS Safety Report 18459584 (Version 2)
Quarter: 2020Q4

REPORT INFORMATION
  Report Type: Spontaneous
  Country: US (occurrence: US)
  Receive Date: 20201103
  Receipt Date: 20201207
  Transmission Date: 20210114
  Serious: Yes (Death, Hospitalization, Other)
  Sender: FDA-Public Use
  Company Number: US-PFIZER INC-2020423134

PATIENT
  Age: 73 Year
  Sex: Female

DRUGS (2)
  1. XELJANZ [Suspect]
     Active Substance: TOFACITINIB CITRATE
     Indication: RHEUMATOID ARTHRITIS
     Dosage: 5 MG, 1X/DAY
     Route: 048
     Dates: start: 202008
  2. XELJANZ [Suspect]
     Active Substance: TOFACITINIB CITRATE
     Dosage: 10 MG, 2X/DAY
     Route: 048
     Dates: start: 202008, end: 20201123

REACTIONS (8)
  - Diarrhoea [Unknown]
  - Sinus disorder [Unknown]
  - Renal failure [Fatal]
  - Drug ineffective [Unknown]
  - Cardiac failure [Fatal]
  - Peripheral swelling [Unknown]
  - Headache [Unknown]
  - Heart valve incompetence [Fatal]

NARRATIVE: CASE EVENT DATE: 2020
